FAERS Safety Report 8876461 (Version 2)
Quarter: 2014Q2

REPORT INFORMATION
  Report Type: Spontaneous
  Country: US (occurrence: US)
  Receive Date: 20121031
  Receipt Date: 20140422
  Transmission Date: 20141212
  Serious: Yes (Hospitalization)
  Sender: FDA-Public Use
  Company Number: US-BAYER-2012-112935

PATIENT
  Age: 32 Year
  Sex: Female

DRUGS (7)
  1. YAZ [Suspect]
  2. FLUCONAZOLE [Concomitant]
     Dosage: 200 MG, UNK
     Route: 048
     Dates: start: 20090409
  3. MOTRIN [Concomitant]
     Indication: PAIN
  4. MORPHINE [Concomitant]
     Dosage: 2 MG, UNK
     Route: 042
  5. DARVOCET-N [Concomitant]
  6. VICODIN [Concomitant]
     Dosage: 5/500 MILLIGRAMS PO (ORAL) EVERY 6 HOURS AS NEEDED
  7. KEFLEX [Concomitant]
     Dosage: 250 MG, EVERY 6 HOURS
     Route: 048

REACTIONS (1)
  - Deep vein thrombosis [None]
